FAERS Safety Report 21076341 (Version 1)
Quarter: 2022Q3

REPORT INFORMATION
  Report Type: Spontaneous
  Country: US (occurrence: US)
  Receive Date: 20220713
  Receipt Date: 20220713
  Transmission Date: 20221026
  Serious: No
  Sender: FDA-Public Use
  Company Number: US-BoehringerIngelheim-2022-BI-172442

PATIENT
  Age: 58 Year
  Sex: Female

DRUGS (1)
  1. SPIRIVA HANDIHALER [Suspect]
     Active Substance: TIOTROPIUM BROMIDE MONOHYDRATE
     Indication: Asthma
     Dosage: 2 PUFFS FROM 1 CAPSULE
     Route: 055
     Dates: start: 20220517

REACTIONS (2)
  - Off label use [Unknown]
  - Product physical issue [Unknown]

NARRATIVE: CASE EVENT DATE: 20220517
